FAERS Safety Report 10414745 (Version 1)
Quarter: 2014Q3

REPORT INFORMATION
  Report Type: Other
  Country: GB (occurrence: GB)
  Receive Date: 20140828
  Receipt Date: 20140828
  Transmission Date: 20150326
  Serious: Yes (Hospitalization)
  Sender: FDA-Public Use
  Company Number: GB-SUN PHARMACEUTICAL INDUSTRIES LTD-2014SUN01908

PATIENT

DRUGS (3)
  1. PARACETAMOL [Concomitant]
     Active Substance: ACETAMINOPHEN
  2. ASPIRIN. [Concomitant]
     Active Substance: ASPIRIN
  3. LETROZOLE. [Suspect]
     Active Substance: LETROZOLE
     Indication: BREAST CANCER
     Dosage: 2.5 MG, 1 DOSE
     Route: 048
     Dates: end: 20140719

REACTIONS (3)
  - Jaundice [Not Recovered/Not Resolved]
  - Liver function test abnormal [Unknown]
  - Pneumobilia [Unknown]
